FAERS Safety Report 7470641-6 (Version None)
Quarter: 2011Q2

REPORT INFORMATION
  Report Type: 
  Country: None (occurrence: None)
  Receive Date: 20110429
  Receipt Date: 20110419
  Transmission Date: 20111010
  Serious: Yes (Disabling)
  Sender: FDA-Public Use
  Company Number: 900553

PATIENT
  Sex: Female
  Weight: 0.92 kg

DRUGS (3)
  1. DEXAMETHASONE [Concomitant]
  2. GENTAMICIN [Concomitant]
  3. VANCOMYCIN HYDROCHLORIDE [Suspect]
     Indication: SEPSIS

REACTIONS (1)
  - NEUROSENSORY HYPOACUSIS [None]
